FAERS Safety Report 24947771 (Version 1)
Quarter: 2025Q1

REPORT INFORMATION
  Report Type: Report from Study
  Country: US (occurrence: US)
  Receive Date: 20250210
  Receipt Date: 20250210
  Transmission Date: 20250409
  Serious: Yes (Hospitalization, Other)
  Sender: ABBVIE
  Company Number: US-ABBVIE-6121433

PATIENT
  Age: 67 Year
  Sex: Male

DRUGS (1)
  1. RINVOQ [Suspect]
     Active Substance: UPADACITINIB
     Indication: Dermatitis atopic
     Route: 048
     Dates: start: 20230726

REACTIONS (3)
  - Hepatic cirrhosis [Not Recovered/Not Resolved]
  - Pneumonia [Recovering/Resolving]
  - Pancreatitis [Recovered/Resolved]

NARRATIVE: CASE EVENT DATE: 20250113
